FAERS Safety Report 9343618 (Version 1)
Quarter: 2013Q2

REPORT INFORMATION
  Report Type: Spontaneous
  Country: SE (occurrence: None)
  Receive Date: 20130610
  Receipt Date: 20130610
  Transmission Date: 20140414
  Serious: Yes (Other)
  Sender: FDA-Public Use
  Company Number: DSM-2013-00545

PATIENT
  Sex: Female

DRUGS (4)
  1. OLMETEC [Suspect]
     Indication: PRODUCT USED FOR UNKNOWN INDICATION
     Dosage: (EVERY 6-4 HOUR),ORAL
     Route: 048
     Dates: start: 2009
  2. CLINDAMYCIN (CLINDAMYCIN) (CLINDAMYCIN) [Concomitant]
  3. MINOCYCLINE (MINOCYCLINE) (MINOCYCLINE) [Concomitant]
  4. AZITROMAX (AZITHROMYCIN) (AZITHROMYCIN) [Concomitant]

REACTIONS (10)
  - Visual impairment [None]
  - Abnormal dreams [None]
  - Feeling cold [None]
  - Dyskinesia [None]
  - Skin exfoliation [None]
  - Fatigue [None]
  - Suicidal ideation [None]
  - Rash [None]
  - Local swelling [None]
  - Incorrect dose administered [None]
